FAERS Safety Report 21549686 (Version 2)
Quarter: 2022Q4

REPORT INFORMATION
  Report Type: Spontaneous
  Country: US (occurrence: US)
  Receive Date: 20221103
  Receipt Date: 20221114
  Transmission Date: 20230112
  Serious: Yes (Hospitalization)
  Sender: FDA-Public Use
  Company Number: US-BRISTOL-MYERS SQUIBB COMPANY-2022-130252

PATIENT
  Age: 81 Year
  Sex: Male
  Weight: 81.646 kg

DRUGS (2)
  1. POMALYST [Suspect]
     Active Substance: POMALIDOMIDE
     Indication: Plasma cell myeloma
     Route: 048
     Dates: start: 20221006
  2. POMALYST [Suspect]
     Active Substance: POMALIDOMIDE
     Indication: Psoriasis

REACTIONS (1)
  - Hospitalisation [Unknown]
